FAERS Safety Report 10479466 (Version 3)
Quarter: 2015Q4

REPORT INFORMATION
  Report Type: Spontaneous
  Country: US (occurrence: US)
  Receive Date: 20140926
  Receipt Date: 20151019
  Transmission Date: 20160304
  Serious: Yes (Other)
  Sender: FDA-Public Use
  Company Number: US-ACTELION-A-NJ2014-105526

PATIENT
  Age: 23 Year
  Sex: Female

DRUGS (3)
  1. ORAL CONTRACEPTIVE NOS [Concomitant]
     Active Substance: UNSPECIFIED INGREDIENT
  2. OPSUMIT [Suspect]
     Active Substance: MACITENTAN
     Indication: PULMONARY ARTERIAL HYPERTENSION
     Dosage: 10 MG, UNK
     Route: 048
     Dates: start: 20131207
  3. MIRENA [Concomitant]
     Active Substance: LEVONORGESTREL

REACTIONS (2)
  - Pregnancy [Recovered/Resolved]
  - Abortion induced [Recovered/Resolved]
